FAERS Safety Report 18842661 (Version 1)
Quarter: 2021Q1

REPORT INFORMATION
  Report Type: Report from Study
  Country: US (occurrence: US)
  Receive Date: 20210203
  Receipt Date: 20210203
  Transmission Date: 20210419
  Serious: Yes (Other)
  Sender: FDA-Public Use
  Company Number: US-JNJFOC-20200943583

PATIENT
  Age: 59 Year
  Sex: Female

DRUGS (3)
  1. MACITENTAN [Suspect]
     Active Substance: MACITENTAN
     Indication: PULMONARY ARTERIAL HYPERTENSION
     Route: 048
     Dates: start: 20200326
  2. ADEMPAS [Suspect]
     Active Substance: RIOCIGUAT
     Indication: PULMONARY ARTERIAL HYPERTENSION
     Route: 065
     Dates: start: 202003
  3. ADEMPAS [Suspect]
     Active Substance: RIOCIGUAT
     Route: 065
     Dates: start: 20201229

REACTIONS (10)
  - Hallucination [Unknown]
  - Visual impairment [Unknown]
  - Ocular hyperaemia [Unknown]
  - Eye disorder [Not Recovered/Not Resolved]
  - Eye swelling [Unknown]
  - Dermatomyositis [Unknown]
  - Headache [Unknown]
  - Nausea [Unknown]
  - Eye haemorrhage [Unknown]
  - Memory impairment [Unknown]

NARRATIVE: CASE EVENT DATE: 202003
